FAERS Safety Report 9068265 (Version 1)
Quarter: 2013Q1

REPORT INFORMATION
  Report Type: Spontaneous
  Country: GB (occurrence: GB)
  Receive Date: 20130206
  Receipt Date: 20130206
  Transmission Date: 20140127
  Serious: Yes (Other)
  Sender: FDA-Public Use
  Company Number: GB-TEVA-382952ISR

PATIENT
  Age: 57 Year
  Sex: Female
  Weight: 90.26 kg

DRUGS (4)
  1. CLARITHROMYCIN [Suspect]
     Indication: SINUS DISORDER
     Dosage: 2 TWICE A DAY TO START COURSE THEN ONCE A DAY
     Route: 048
     Dates: start: 20121001
  2. CLARITHROMYCIN [Suspect]
     Indication: SINUS DISORDER
     Dosage: 2 TWICE A DAY TO START COURSE THEN ONCE A DAY
     Route: 048
     Dates: end: 20121212
  3. AMITRIPTYLINE [Concomitant]
     Indication: SLEEP DISORDER
     Dosage: AT NIGHT
  4. CIPROFLOXACIN [Concomitant]

REACTIONS (3)
  - Arthralgia [Recovered/Resolved]
  - Gait disturbance [Unknown]
  - Pain [Unknown]
